FAERS Safety Report 6246436-8 (Version None)
Quarter: 2009Q2

REPORT INFORMATION
  Report Type: 
  Country: None (occurrence: None)
  Receive Date: 20090626
  Receipt Date: 20090619
  Transmission Date: 20091009
  Serious: Yes (Other)
  Sender: FDA-Public Use
  Company Number: US-ROCHE-639565

PATIENT
  Sex: Female
  Weight: 72.6 kg

DRUGS (1)
  1. CAPECITABINE [Suspect]
     Indication: BREAST CANCER
     Dosage: STRENGTH: 500 MG AND 150 MG DOSE AND FREQUENCY: 2 X 500 MG BID  AND 1 X 150 MG BID
     Route: 048
     Dates: start: 20090119, end: 20090501

REACTIONS (1)
  - LUNG NEOPLASM [None]
